FAERS Safety Report 24913484 (Version 1)
Quarter: 2025Q1

REPORT INFORMATION
  Report Type: Spontaneous
  Country: US (occurrence: US)
  Receive Date: 20250201
  Receipt Date: 20250201
  Transmission Date: 20250409
  Serious: No
  Sender: MERCK
  Company Number: US-009507513-2501USA010792

PATIENT
  Age: 14 Year
  Sex: Male

DRUGS (2)
  1. TEMODAR [Suspect]
     Active Substance: TEMOZOLOMIDE
     Indication: Paraganglion neoplasm malignant
  2. THALIDOMIDE [Concomitant]
     Active Substance: THALIDOMIDE
     Indication: Paraganglion neoplasm malignant

REACTIONS (1)
  - Off label use [Unknown]
